FAERS Safety Report 9871288 (Version 2)
Quarter: 2014Q1

REPORT INFORMATION
  Report Type: Spontaneous
  Country: NL (occurrence: NL)
  Receive Date: 20140205
  Receipt Date: 20140219
  Transmission Date: 20141002
  Serious: Yes (Other)
  Sender: FDA-Public Use
  Company Number: NL-GLAXOSMITHKLINE-B0957018A

PATIENT
  Age: 63 Year
  Sex: Female

DRUGS (4)
  1. AVAMYS [Suspect]
     Indication: RHINITIS ALLERGIC
     Dosage: 110MCG PER DAY
     Route: 065
     Dates: start: 20110101, end: 20131230
  2. CETIRIZINE [Concomitant]
     Dosage: 10MG PER DAY
  3. CITALOPRAM [Concomitant]
     Dosage: 5MG PER DAY
  4. GLUCOSAMINE [Concomitant]

REACTIONS (4)
  - Retinal degeneration [Not Recovered/Not Resolved]
  - Rhinorrhoea [Not Recovered/Not Resolved]
  - Eye disorder [Not Recovered/Not Resolved]
  - Dysphagia [Not Recovered/Not Resolved]
